FAERS Safety Report 22530582 (Version 1)
Quarter: 2023Q2

REPORT INFORMATION
  Report Type: Spontaneous
  Country: DE (occurrence: DE)
  Receive Date: 20230607
  Receipt Date: 20230607
  Transmission Date: 20230722
  Serious: Yes (Death, Hospitalization, Other)
  Sender: FDA-Public Use
  Company Number: DE-AMGEN-DEUSP2023096445

PATIENT

DRUGS (30)
  1. ADALIMUMAB [Suspect]
     Active Substance: ADALIMUMAB
     Indication: Rheumatic disorder
     Dosage: UNK
     Route: 065
  2. APREMILAST [Suspect]
     Active Substance: APREMILAST
     Indication: Rheumatic disorder
     Dosage: UNK
     Route: 065
  3. MODERNA COVID-19 VACCINE [Concomitant]
     Active Substance: ELASOMERAN
     Indication: COVID-19 immunisation
     Dosage: UNK
  4. PFIZER-BIONTECH COVID-19 VACCINE [Concomitant]
     Active Substance: TOZINAMERAN
     Indication: COVID-19 immunisation
     Dosage: UNK
  5. ASTRAZENECA COVID-19 VACCINE [Concomitant]
     Active Substance: AZD-1222
     Indication: COVID-19 immunisation
     Dosage: UNK
  6. JANSSEN COVID-19 VACCINE [Concomitant]
     Active Substance: AD26.COV2.S
     Indication: COVID-19 immunisation
     Dosage: UNK
  7. Nuvaxovid [Concomitant]
     Indication: COVID-19 immunisation
     Dosage: UNK
  8. PREDNISOLONE [Concomitant]
     Active Substance: PREDNISOLONE
     Indication: Rheumatic disorder
     Dosage: LESS THAN EQUAL TO 5 MILLIGRAM/QD
  9. PREDNISOLONE [Concomitant]
     Active Substance: PREDNISOLONE
     Dosage: 6-9 MILLIGRAM/QD
  10. PREDNISOLONE [Concomitant]
     Active Substance: PREDNISOLONE
     Dosage: MORE THAN EQUAL TO 10 MILLIGRAM/QD
  11. METHOTREXATE [Concomitant]
     Active Substance: METHOTREXATE
     Indication: Rheumatic disorder
     Dosage: UNK
  12. LEFLUNOMIDE [Concomitant]
     Active Substance: LEFLUNOMIDE
     Indication: Rheumatic disorder
  13. SULFASALAZINE [Concomitant]
     Active Substance: SULFASALAZINE
     Indication: Rheumatic disorder
  14. AZATHIOPRINE [Concomitant]
     Active Substance: AZATHIOPRINE
     Indication: Rheumatic disorder
  15. CERTOLIZUMAB [Concomitant]
     Active Substance: CERTOLIZUMAB
     Indication: Rheumatic disorder
  16. INFLIXIMAB [Concomitant]
     Active Substance: INFLIXIMAB
     Indication: Rheumatic disorder
  17. GOLIMUMAB [Concomitant]
     Active Substance: GOLIMUMAB
     Indication: Rheumatic disorder
  18. ETANERCEPT [Concomitant]
     Active Substance: ETANERCEPT
     Indication: Rheumatic disorder
  19. BARICITINIB [Concomitant]
     Active Substance: BARICITINIB
     Indication: Rheumatic disorder
     Dosage: UNK
  20. TOFACITINIB [Concomitant]
     Active Substance: TOFACITINIB
     Indication: Rheumatic disorder
  21. UPADACITINIB [Concomitant]
     Active Substance: UPADACITINIB
     Indication: Rheumatic disorder
  22. FILGOTINIB [Concomitant]
     Active Substance: FILGOTINIB
     Indication: Rheumatic disorder
  23. CYCLOSPORINE [Concomitant]
     Active Substance: CYCLOSPORINE
     Indication: Rheumatic disorder
  24. MYCOPHENOLATE MOFETIL [Concomitant]
     Active Substance: MYCOPHENOLATE MOFETIL
     Indication: Rheumatic disorder
  25. CYCLOPHOSPHAMIDE [Concomitant]
     Active Substance: CYCLOPHOSPHAMIDE
     Indication: Rheumatic disorder
  26. ABATACEPT [Concomitant]
     Active Substance: ABATACEPT
     Indication: Rheumatic disorder
  27. RITUXIMAB [Concomitant]
     Active Substance: RITUXIMAB
     Indication: Rheumatic disorder
  28. BELIMUMAB [Concomitant]
     Active Substance: BELIMUMAB
     Indication: Rheumatic disorder
  29. IMMUNE GLOBULIN NOS [Concomitant]
     Active Substance: IMMUNE GLOBULIN NOS
     Indication: Rheumatic disorder
  30. COLCHICINE [Concomitant]
     Active Substance: COLCHICINE
     Indication: Rheumatic disorder

REACTIONS (6)
  - Breakthrough COVID-19 [Fatal]
  - Embolism [Unknown]
  - Myocarditis [Unknown]
  - Cardiac failure [Unknown]
  - Arrhythmia [Unknown]
  - Infection [Unknown]
